FAERS Safety Report 6168726-X (Version None)
Quarter: 2009Q2

REPORT INFORMATION
  Report Type: 
  Country: None (occurrence: None)
  Receive Date: 20090427
  Receipt Date: 20090421
  Transmission Date: 20091009
  Serious: Yes (Death, Life-Threatening, Other)
  Sender: FDA-Public Use
  Company Number: JP-BAYER-200911228BYL

PATIENT
  Age: 62 Year
  Sex: Female
  Weight: 49 kg

DRUGS (12)
  1. FLUDARA [Suspect]
     Indication: PERIPHERAL T-CELL LYMPHOMA UNSPECIFIED
     Dosage: AS USED: 25 MG/M2  UNIT DOSE: 50 MG
     Route: 042
     Dates: start: 20080620, end: 20080625
  2. ALKERAN [Concomitant]
     Indication: PERIPHERAL T-CELL LYMPHOMA UNSPECIFIED
     Dosage: AS USED: 40 MG/M2
     Route: 042
     Dates: start: 20080622, end: 20080623
  3. BAKTAR [Concomitant]
     Indication: INFECTION PROPHYLAXIS
     Dosage: AS USED: 4 DF  UNIT DOSE: 1 DF
     Route: 048
     Dates: start: 20080612, end: 20080624
  4. ITRIZOLE [Concomitant]
     Indication: INFECTION PROPHYLAXIS
     Dosage: AS USED: 200 MG
     Route: 048
     Dates: end: 20080628
  5. VICCLOX [Concomitant]
     Indication: INFECTION PROPHYLAXIS
     Route: 048
     Dates: start: 20080619, end: 20080704
  6. SOLU-MEDROL [Concomitant]
     Indication: PROPHYLAXIS
     Dosage: AS USED: 125 MG
     Route: 042
     Dates: start: 20080612, end: 20080626
  7. NISSEKI POLYGLOBIN-N [Concomitant]
     Indication: INFECTION PROPHYLAXIS
     Dosage: AS USED: 10 G
     Route: 042
     Dates: start: 20080612, end: 20080626
  8. PREDONINE [Concomitant]
     Dosage: AS USED: 40 MG
     Route: 042
     Dates: end: 20080622
  9. SANDIMMUNE [Concomitant]
     Indication: PROPHYLAXIS AGAINST GRAFT VERSUS HOST DISEASE
     Dosage: AS USED: 70 MG
     Route: 042
     Dates: start: 20080625, end: 20080707
  10. METHOTREXATE [Concomitant]
     Indication: PROPHYLAXIS AGAINST GRAFT VERSUS HOST DISEASE
     Dosage: 27-JUN-2008
     Route: 042
     Dates: start: 20080627, end: 20080629
  11. HUMAN RED BLOOD CELLS [Concomitant]
     Indication: PACKED RED BLOOD CELL TRANSFUSION
     Route: 042
     Dates: start: 20080616, end: 20080707
  12. PLATELETS [Concomitant]
     Indication: PLATELET TRANSFUSION
     Route: 042
     Dates: start: 20080616, end: 20080707

REACTIONS (6)
  - NEUTROPENIA [None]
  - PSEUDOMEMBRANOUS COLITIS [None]
  - SEPSIS [None]
  - STOMATITIS [None]
  - VENOOCCLUSIVE LIVER DISEASE [None]
  - VOMITING [None]
